FAERS Safety Report 11253627 (Version 2)
Quarter: 2015Q4

REPORT INFORMATION
  Report Type: Spontaneous
  Country: DE (occurrence: DE)
  Receive Date: 20150709
  Receipt Date: 20151209
  Transmission Date: 20160304
  Serious: Yes (Hospitalization, Other)
  Sender: FDA-Public Use
  Company Number: DE-AMGEN-DEUSP2015066289

PATIENT
  Sex: Female

DRUGS (36)
  1. PEGFILGRASTIM [Suspect]
     Active Substance: PEGFILGRASTIM
     Dosage: 6 MG, UNK
     Route: 058
     Dates: start: 20150612, end: 20150612
  2. DOXORUBICIN [Suspect]
     Active Substance: DOXORUBICIN
     Dosage: 50 MG/M2, 1 IN 1 D
     Route: 042
     Dates: start: 20150611, end: 20150611
  3. INSULIN GLARGINE [Concomitant]
     Active Substance: INSULIN GLARGINE
     Indication: DIABETES MELLITUS
     Dosage: 20 IU, 1 IN 1 D
     Route: 058
     Dates: start: 2015
  4. CEFUROXIM                          /00454602/ [Concomitant]
     Active Substance: CEFUROXIME
     Indication: INFECTION PROPHYLAXIS
     Dosage: 1.5 G, 3 IN 1 D
     Route: 042
     Dates: start: 20150525
  5. FUROSEMIDE. [Concomitant]
     Active Substance: FUROSEMIDE
     Indication: HYPERTENSION
     Dosage: 20 MG, 2 IN 1 D
     Dates: start: 2015
  6. RITUXIMAB [Suspect]
     Active Substance: RITUXIMAB
     Indication: B-CELL LYMPHOMA
     Dosage: 375 MG/M2, 1 IN 1 D
     Route: 042
     Dates: start: 20150506, end: 20150506
  7. PREDNISOLONE. [Suspect]
     Active Substance: PREDNISOLONE
     Dosage: 100 MG, 1 IN 1 D
     Route: 048
     Dates: start: 20150611, end: 20150614
  8. TORSEMIDE. [Concomitant]
     Active Substance: TORSEMIDE
     Indication: HYPERTENSION
     Dosage: UNK
     Route: 048
  9. INSULIN [Concomitant]
     Active Substance: INSULIN NOS
     Indication: DIABETES MELLITUS
     Dosage: 81E BEFORE EATING
     Route: 058
     Dates: start: 2015
  10. SULFAMETHOXAZOLE AND TRIMETHOPRIM [Concomitant]
     Active Substance: SULFAMETHOXAZOLE\TRIMETHOPRIM
     Dosage: 160/800MG, 2 PER WEEK (2 IN 1 D)
     Route: 048
     Dates: start: 20150404
  11. COLECALCIFEROL [Concomitant]
     Active Substance: CHOLECALCIFEROL
     Indication: VITAMIN SUPPLEMENTATION
     Dosage: 20000 IU, 1 IN 1 D
     Route: 048
  12. CYCLOPHOSPHAMIDE. [Suspect]
     Active Substance: CYCLOPHOSPHAMIDE
     Dosage: 750 MG/M2, 1 IN 1 D
     Route: 042
     Dates: start: 20150611, end: 20150611
  13. PREDNISOLONE. [Suspect]
     Active Substance: PREDNISOLONE
     Dosage: 100 MG, 1 IN 1 D
     Route: 048
     Dates: start: 201505
  14. AMITRIPTYLINE [Concomitant]
     Active Substance: AMITRIPTYLINE
     Indication: DEPRESSED MOOD
     Dosage: 25 MG, 1 IN 1 D
     Route: 048
     Dates: start: 2015
  15. DIPYRONE [Concomitant]
     Active Substance: DIPYRONE
     Indication: PAIN
     Dosage: 30 GTT, 3 IN 1 D
     Route: 048
     Dates: start: 201505
  16. METOCLOPRAMIDE. [Concomitant]
     Active Substance: METOCLOPRAMIDE
     Indication: CONSTIPATION PROPHYLAXIS
     Dosage: 10 MG, 3 IN 1 D
     Route: 048
  17. PEGFILGRASTIM [Suspect]
     Active Substance: PEGFILGRASTIM
     Indication: B-CELL LYMPHOMA
     Dosage: 6 MG, 1 IN 1 D
     Route: 058
     Dates: start: 20150513, end: 20150513
  18. RITUXIMAB [Suspect]
     Active Substance: RITUXIMAB
     Dosage: 375 MG/M2, 1 IN 1 D
     Route: 042
     Dates: start: 20150610, end: 20150610
  19. VINCRISTINE [Suspect]
     Active Substance: VINCRISTINE
     Indication: B-CELL LYMPHOMA
     Dosage: 3.28 MG, 1 IN 1 D
     Route: 042
     Dates: start: 20150508, end: 20150508
  20. VINCRISTINE [Suspect]
     Active Substance: VINCRISTINE
     Dosage: 3.34 MG, 1 IN 1 D
     Route: 042
     Dates: start: 20150611, end: 20150611
  21. RAMIPRIL. [Concomitant]
     Active Substance: RAMIPRIL
     Indication: HYPERTENSION
     Dosage: 2.5 MG, 1 IN 1 D
     Route: 048
  22. RITUXIMAB [Suspect]
     Active Substance: RITUXIMAB
     Dosage: 375 MG/M2, 1 IN 1 D
     Route: 042
     Dates: start: 20150415, end: 20150415
  23. PREDNISOLONE. [Suspect]
     Active Substance: PREDNISOLONE
     Indication: B-CELL LYMPHOMA
     Dosage: 100 MG, FOR 20 DAYS
     Route: 048
     Dates: start: 201504, end: 20150420
  24. HYDROMORPHONE [Concomitant]
     Active Substance: HYDROMORPHONE
     Dosage: 1.3 MG, UNK
     Route: 048
  25. HYDROCHLOROTHIAZIDE. [Concomitant]
     Active Substance: HYDROCHLOROTHIAZIDE
     Indication: HYPERTENSION
     Dosage: 1 IN 1 D
     Route: 048
     Dates: start: 2015
  26. CYCLOPHOSPHAMIDE. [Suspect]
     Active Substance: CYCLOPHOSPHAMIDE
     Indication: B-CELL LYMPHOMA
     Dosage: 750 MG/M2, 1 IN 1 D
     Route: 042
     Dates: start: 20150506, end: 20150508
  27. DOXORUBICIN [Suspect]
     Active Substance: DOXORUBICIN
     Indication: B-CELL LYMPHOMA
     Dosage: 50 MG/M2, 1 IN 1 D
     Route: 042
     Dates: start: 20150508, end: 20150508
  28. PREDNISOLONE. [Suspect]
     Active Substance: PREDNISOLONE
     Dosage: 100 MG, 1 IN 1 D
     Route: 048
     Dates: start: 20150508, end: 20150512
  29. BISOPROLOL [Concomitant]
     Active Substance: BISOPROLOL
     Indication: HYPERTENSION
     Dosage: 25 MG, 2 IN 1 D
     Route: 048
  30. APIXABAN [Concomitant]
     Active Substance: APIXABAN
     Indication: THROMBOSIS PROPHYLAXIS
     Dosage: 5 MG, 2 IN 1 D
     Route: 048
     Dates: start: 2015
  31. PANTOPRAZOLE SODIUM. [Concomitant]
     Active Substance: PANTOPRAZOLE SODIUM
     Indication: GASTRITIS PROPHYLAXIS
     Dosage: 40 MG, 2 IN 1 D
     Route: 048
     Dates: start: 2015
  32. ACICLOVIR [Concomitant]
     Active Substance: ACYCLOVIR
     Dosage: 400 MG, 4 IN 1 D
     Route: 048
  33. HYDROMORPHONE [Concomitant]
     Active Substance: HYDROMORPHONE
     Indication: PAIN
     Dosage: 4 MG, UNK
     Route: 048
     Dates: start: 201505
  34. LEVOTHYROXINE SODIUM. [Concomitant]
     Active Substance: LEVOTHYROXINE SODIUM
     Indication: HYPOTHYROIDISM
     Dosage: 50 MCG, 1 IN 1 D
     Route: 048
     Dates: start: 2011
  35. ALLOPURINOL. [Concomitant]
     Active Substance: ALLOPURINOL
     Dosage: 100 MG, 1 IN 1 D
     Route: 048
     Dates: start: 2015
  36. DIPYRONE [Concomitant]
     Active Substance: DIPYRONE
     Dosage: 30 G, 3 IN 1 D
     Route: 048

REACTIONS (6)
  - Leukopenia [Recovered/Resolved]
  - Febrile neutropenia [Recovered/Resolved]
  - Thrombocytopenia [Recovered/Resolved]
  - Asthenia [Recovered/Resolved]
  - Thoracic vertebral fracture [Recovered/Resolved with Sequelae]
  - Dyspnoea exertional [Recovered/Resolved]

NARRATIVE: CASE EVENT DATE: 20150513
